FAERS Safety Report 5502794-0 (Version None)
Quarter: 2007Q4

REPORT INFORMATION
  Report Type: 
  Country: None (occurrence: None)
  Receive Date: 20071031
  Receipt Date: 20071018
  Transmission Date: 20080405
  Serious: Yes (Death, Hospitalization)
  Sender: FDA-Public Use
  Company Number: GB-AMGEN-US249549

PATIENT
  Age: 65 Year
  Sex: Male
  Weight: 104 kg

DRUGS (5)
  1. ENBREL [Suspect]
     Indication: RHEUMATOID ARTHRITIS
     Route: 058
     Dates: start: 20050701
  2. ARAVA [Suspect]
     Indication: RHEUMATOID ARTHRITIS
     Dates: start: 20050201
  3. ARAVA [Suspect]
     Dosage: UNKNOWN
     Dates: start: 20050101, end: 20051201
  4. ACETAMINOPHEN [Concomitant]
     Dosage: UNKNOWN
     Dates: end: 20050401
  5. CELECOXIB [Concomitant]
     Dosage: UNKNOWN
     Dates: end: 20050401

REACTIONS (16)
  - ABDOMINAL DISTENSION [None]
  - ARTERIOSCLEROSIS CORONARY ARTERY [None]
  - CONSTIPATION [None]
  - DYSPNOEA [None]
  - FEELING HOT [None]
  - HAEMATOCHEZIA [None]
  - HAEMORRHOIDS [None]
  - HYPERHIDROSIS [None]
  - INFLAMMATION [None]
  - INSOMNIA [None]
  - LARGE INTESTINE PERFORATION [None]
  - PERITONEAL HAEMORRHAGE [None]
  - PULMONARY CONGESTION [None]
  - PULMONARY OEDEMA [None]
  - STREPTOCOCCAL SEPSIS [None]
  - VOMITING [None]
